FAERS Safety Report 7226981-9 (Version None)
Quarter: 2011Q1

REPORT INFORMATION
  Report Type: 
  Country: None (occurrence: None)
  Receive Date: 20110114
  Receipt Date: 20110104
  Transmission Date: 20110831
  Serious: Yes (Hospitalization)
  Sender: FDA-Public Use
  Company Number: US-ELI_LILLY_AND_COMPANY-US201009007167

PATIENT
  Sex: Female

DRUGS (14)
  1. FORTEO [Suspect]
     Indication: OSTEOPOROSIS
     Dosage: 20 UG, DAILY (1/D)
     Dates: start: 20100903
  2. DIAZIDE [Concomitant]
     Dosage: UNK, DAILY (1/D)
  3. PLAQUENIL [Concomitant]
     Indication: RHEUMATOID ARTHRITIS
     Dosage: UNK, 2/D
  4. LEVOTHYROXINE [Concomitant]
     Dosage: 110 UG, DAILY (1/D)
  5. FORTEO [Suspect]
     Dosage: 20 UG, DAILY (1/D)
  6. CALCIUM W/VITAMIN D NOS [Concomitant]
     Dosage: 1200 MG, DAILY (1/D)
  7. CYMBALTA [Concomitant]
     Dosage: 30 MG, DAILY (1/D)
  8. VITAMIN B-12 [Concomitant]
  9. ASPIRIN [Concomitant]
     Dosage: 81 MG, UNK
  10. MELATONIN [Concomitant]
  11. RESTASIS [Concomitant]
  12. TRAMADOL [Concomitant]
     Indication: PAIN
     Dosage: UNK, EACH EVENING
  13. VITAMIN TAB [Concomitant]
  14. ASCORBIC ACID [Concomitant]

REACTIONS (3)
  - IMPAIRED HEALING [None]
  - WHEELCHAIR USER [None]
  - JOINT DISLOCATION [None]
